FAERS Safety Report 8210513-2 (Version None)
Quarter: 2012Q1

REPORT INFORMATION
  Report Type: 
  Country: None (occurrence: None)
  Receive Date: 20120314
  Receipt Date: 20110804
  Transmission Date: 20120608
  Serious: No
  Sender: FDA-Public Use
  Company Number: US-ASTRAZENECA-2011SE46806

PATIENT
  Sex: Male

DRUGS (2)
  1. TOPROL-XL [Suspect]
     Indication: PULSE ABNORMAL
     Route: 048
     Dates: start: 20110801
  2. METOPROLOL TARTRATE [Suspect]
     Indication: HEART RATE ABNORMAL
     Route: 065

REACTIONS (2)
  - OFF LABEL USE [None]
  - CHEST DISCOMFORT [None]
